FAERS Safety Report 8157282-2 (Version None)
Quarter: 2012Q1

REPORT INFORMATION
  Report Type: 
  Country: None (occurrence: None)
  Receive Date: 20120222
  Receipt Date: 20120215
  Transmission Date: 20120608
  Serious: Yes (Hospitalization)
  Sender: FDA-Public Use
  Company Number: US-B.I. PHARMACEUTICALS,INC./RIDGEFIELD-2011-BP-19411BP

PATIENT
  Age: 68 Year
  Sex: Female

DRUGS (7)
  1. ACETAMINOPHEN [Concomitant]
     Route: 048
  2. NORVASC [Concomitant]
     Dosage: 5 MG
  3. TOPROL-XL [Concomitant]
     Dosage: 25 MG
  4. PRADAXA [Suspect]
     Indication: ATRIAL FIBRILLATION
     Dosage: 300 MG
     Route: 048
  5. NEXIUM [Concomitant]
     Dosage: 4 MG
  6. GLUCOSAMINE [Concomitant]
     Dosage: 1000 MG
  7. AMBIEN [Concomitant]

REACTIONS (3)
  - HAEMOPTYSIS [None]
  - LIVER FUNCTION TEST ABNORMAL [None]
  - HAEMORRHAGE [None]
